FAERS Safety Report 7364460-9 (Version None)
Quarter: 2011Q1

REPORT INFORMATION
  Report Type: 
  Country: None (occurrence: None)
  Receive Date: 20110321
  Receipt Date: 20110316
  Transmission Date: 20110831
  Serious: Yes (Death)
  Sender: FDA-Public Use
  Company Number: CA-PFIZER INC-2011058875

PATIENT
  Sex: Female

DRUGS (1)
  1. PRISTIQ [Suspect]

REACTIONS (1)
  - COMPLETED SUICIDE [None]
